FAERS Safety Report 8798990 (Version 1)
Quarter: 2012Q4

REPORT INFORMATION
  Report Type: Spontaneous
  Country: US (occurrence: None)
  Receive Date: 20120914
  Receipt Date: 20120914
  Transmission Date: 20130627
  Serious: Yes (Other)
  Sender: FDA-Public Use
  Company Number: 1403625

PATIENT
  Age: 47 Year
  Sex: Female
  Weight: 71.82 kg

DRUGS (2)
  1. PACLITAXEL [Suspect]
     Indication: BREAST CANCER
     Dosage: 310 mg, Over 3 hours q 14 days ( UNKNOWN )
     Route: 041
     Dates: start: 20120830
  2. HERCEPTIN [Suspect]
     Indication: DRUG USE FOR UNKNOWN INDICATION
     Route: 041

REACTIONS (2)
  - Dyspnoea [None]
  - Hot flush [None]
